FAERS Safety Report 13587546 (Version 1)
Quarter: 2017Q2

REPORT INFORMATION
  Report Type: Spontaneous
  Country: US (occurrence: US)
  Receive Date: 20170526
  Receipt Date: 20170526
  Transmission Date: 20170830
  Serious: No
  Sender: FDA-Public Use
  Company Number: None

PATIENT
  Age: 52 Year
  Sex: Female

DRUGS (1)
  1. HUMIRA [Suspect]
     Active Substance: ADALIMUMAB
     Indication: RHEUMATOID ARTHRITIS
     Dosage: FREQUENCY - Q2 WEEKS
     Route: 058
     Dates: start: 20170310

REACTIONS (4)
  - Groin pain [None]
  - Tendon disorder [None]
  - Inflammation [None]
  - Myalgia [None]

NARRATIVE: CASE EVENT DATE: 20170525
